FAERS Safety Report 8389909-4 (Version None)
Quarter: 2012Q2

REPORT INFORMATION
  Report Type: 
  Country: None (occurrence: None)
  Receive Date: 20120515
  Receipt Date: 20120510
  Transmission Date: 20120825
  Serious: Yes (Death)
  Sender: FDA-Public Use
  Company Number: 2012SP024859

PATIENT
  Sex: Male

DRUGS (1)
  1. NOXAFIL [Suspect]
     Indication: SALVAGE THERAPY
     Dosage: 400 MG;BID;PO
     Route: 048
     Dates: start: 20110706, end: 20110710

REACTIONS (1)
  - SEPTIC SHOCK [None]
